FAERS Safety Report 10137967 (Version 2)
Quarter: 2014Q3

REPORT INFORMATION
  Report Type: Spontaneous
  Country: CA (occurrence: None)
  Receive Date: 20140423
  Receipt Date: 20140902
  Transmission Date: 20150326
  Serious: Yes (Other)
  Sender: FDA-Public Use
  Company Number: CA-145534

PATIENT
  Sex: Female
  Weight: 90.9 kg

DRUGS (1)
  1. WINRHO SDF LIQUID [Suspect]
     Active Substance: HUMAN RHO(D) IMMUNE GLOBULIN
     Indication: PROPHYLAXIS AGAINST RH ISOIMMUNISATION
     Route: 030
     Dates: start: 20131223, end: 20131223

REACTIONS (3)
  - Antibody test positive [None]
  - Maternal exposure during pregnancy [None]
  - Treatment failure [None]

NARRATIVE: CASE EVENT DATE: 20131223
